FAERS Safety Report 9832550 (Version 1)
Quarter: 2014Q1

REPORT INFORMATION
  Report Type: Spontaneous
  Country: GB (occurrence: GB)
  Receive Date: 20140121
  Receipt Date: 20140121
  Transmission Date: 20141002
  Serious: Yes (Other)
  Sender: FDA-Public Use
  Company Number: GB-BRISTOL-MYERS SQUIBB COMPANY-19984251

PATIENT
  Age: 45 Year
  Sex: Male
  Weight: 104 kg

DRUGS (7)
  1. DAPAGLIFLOZIN [Suspect]
     Dates: start: 20131223
  2. GLICLAZIDE [Concomitant]
     Dates: start: 20130920
  3. METFORMIN [Concomitant]
     Dates: start: 20130920
  4. RAMIPRIL [Concomitant]
     Dates: start: 20130920
  5. SIMVASTATIN [Concomitant]
     Dates: start: 20130920
  6. CANDESARTAN [Concomitant]
     Dates: start: 20131014
  7. LOSARTAN [Concomitant]
     Dates: start: 20131223

REACTIONS (2)
  - Back pain [Unknown]
  - Thirst [Unknown]
